FAERS Safety Report 24366855 (Version 1)
Quarter: 2024Q3

REPORT INFORMATION
  Report Type: Other
  Country: US (occurrence: US)
  Receive Date: 20240926
  Receipt Date: 20240926
  Transmission Date: 20241016
  Serious: Yes (Other)
  Sender: INNOGENIX
  Company Number: US-Innogenix, LLC-2162077

PATIENT
  Age: 74 Year
  Sex: Male

DRUGS (1)
  1. PILOCARPINE HYDROCHLORIDE [Suspect]
     Active Substance: PILOCARPINE HYDROCHLORIDE
     Indication: Presbyopia

REACTIONS (2)
  - Rhegmatogenous retinal detachment [Recovered/Resolved]
  - Product use in unapproved indication [Unknown]
